FAERS Safety Report 5777919-2 (Version None)
Quarter: 2008Q2

REPORT INFORMATION
  Report Type: 
  Country: None (occurrence: None)
  Receive Date: 20080618
  Receipt Date: 20080612
  Transmission Date: 20081010
  Serious: Yes (Hospitalization)
  Sender: FDA-Public Use
  Company Number: US-WATSON-2008-03616

PATIENT
  Sex: Male

DRUGS (7)
  1. LORAZEPAM [Suspect]
     Indication: SLEEP DISORDER
     Dosage: 0.5 MG, DAILY
     Route: 048
     Dates: start: 20060101
  2. OMEPRAZOLE [Concomitant]
     Indication: GASTROOESOPHAGEAL REFLUX DISEASE
     Dosage: UNK
  3. TIMOPTIC [Concomitant]
     Indication: GLAUCOMA
     Dosage: UNK
  4. VITAMINS [Concomitant]
     Indication: DRUG USE FOR UNKNOWN INDICATION
     Dosage: UNK
  5. DAPSONE [Concomitant]
     Indication: COELIAC DISEASE
     Dosage: UNK
  6. POLY-IRON                          /01214501/ [Concomitant]
     Indication: IRON DEFICIENCY ANAEMIA
     Dosage: UNK
  7. CELEBREX [Concomitant]
     Indication: ARTHRITIS
     Dosage: UNK

REACTIONS (4)
  - DIZZINESS [None]
  - EXTRASYSTOLES [None]
  - FALL [None]
  - HEADACHE [None]
